FAERS Safety Report 6978201-8 (Version None)
Quarter: 2010Q3

REPORT INFORMATION
  Report Type: 
  Country: None (occurrence: None)
  Receive Date: 20100913
  Receipt Date: 20100909
  Transmission Date: 20110219
  Serious: Yes (Death)
  Sender: FDA-Public Use
  Company Number: US-ASTRAZENECA-2007UW01144

PATIENT
  Age: 18059 Day
  Sex: Male
  Weight: 147 kg

DRUGS (14)
  1. SEROQUEL [Suspect]
     Indication: SCHIZOPHRENIA
     Route: 048
     Dates: start: 20001005, end: 20011006
  2. SEROQUEL [Suspect]
     Indication: ANXIETY
     Route: 048
     Dates: start: 20001005, end: 20011006
  3. SEROQUEL [Suspect]
     Indication: THINKING ABNORMAL
     Route: 048
     Dates: start: 20001005, end: 20011006
  4. SEROQUEL [Suspect]
     Route: 048
     Dates: start: 20011221, end: 20040101
  5. SEROQUEL [Suspect]
     Route: 048
     Dates: start: 20011221, end: 20040101
  6. SEROQUEL [Suspect]
     Route: 048
     Dates: start: 20011221, end: 20040101
  7. ABILIFY [Concomitant]
  8. HALDOL [Concomitant]
     Dates: start: 19790101
  9. NAVANE [Concomitant]
  10. RISPERDAL [Concomitant]
     Indication: PARANOIA
     Route: 048
     Dates: start: 20001005, end: 20011006
  11. THORAZINE [Concomitant]
  12. TRILAFON [Concomitant]
  13. TRIAVIL [Concomitant]
  14. LANSOPRAZOLE [Concomitant]
     Indication: GASTROOESOPHAGEAL REFLUX DISEASE
     Route: 048
     Dates: start: 20001020, end: 20011021

REACTIONS (2)
  - DEATH [None]
  - TYPE 2 DIABETES MELLITUS [None]
